FAERS Safety Report 8496316-2 (Version None)
Quarter: 2012Q3

REPORT INFORMATION
  Report Type: 
  Country: None (occurrence: None)
  Receive Date: 20120709
  Receipt Date: 20120625
  Transmission Date: 20120928
  Serious: Yes (Hospitalization)
  Sender: FDA-Public Use
  Company Number: GB-MYLANLABS-2012S1013182

PATIENT
  Age: 73 Year
  Sex: Female

DRUGS (3)
  1. WARFARIN SODIUM [Suspect]
     Dosage: 2MG INITIALLY AND INCREASED ACCORDING TO INR (TARGET ACHIEVED WITH 4MG)
     Route: 065
  2. LEVOTHYROXINE SODIUM [Concomitant]
     Indication: HYPOTHYROIDISM
     Route: 065
  3. WARFARIN SODIUM [Suspect]
     Dosage: 5MG (TARGET INR 2.5-3.5)
     Route: 065

REACTIONS (6)
  - ECCHYMOSIS [None]
  - MOUTH HAEMORRHAGE [None]
  - HAEMATOMA [None]
  - TONGUE PARALYSIS [None]
  - DYSPHONIA [None]
  - INCISION SITE HAEMORRHAGE [None]
